FAERS Safety Report 11758455 (Version 1)
Quarter: 2015Q4

REPORT INFORMATION
  Report Type: Spontaneous
  Country: US (occurrence: US)
  Receive Date: 20151120
  Receipt Date: 20151120
  Transmission Date: 20160304
  Serious: No
  Sender: FDA-Public Use
  Company Number: US-PFIZER INC-2015386146

PATIENT
  Age: 51 Year
  Sex: Female
  Weight: 95 kg

DRUGS (5)
  1. TREZIX [Concomitant]
     Active Substance: ACETAMINOPHEN\CAFFEINE\DIHYDROCODEINE BITARTRATE
     Indication: PAIN
     Dosage: 2 (NO MILLIGRAMS NOTED ON BOTTLE), 3X/DAY, AS NEEDED
  2. FLEXERIL [Concomitant]
     Active Substance: CYCLOBENZAPRINE HYDROCHLORIDE
     Dosage: EVERY NIGHT, LOW DOSE, NOT OVER 10MG
  3. FLEXERIL [Concomitant]
     Active Substance: CYCLOBENZAPRINE HYDROCHLORIDE
     Dosage: AS NEEDED, LOW DOSE, NOT OVER 10MG
  4. LYRICA [Suspect]
     Active Substance: PREGABALIN
     Dosage: 75MG IN MORNING, 75MG AT LUNCH AS NEEDED, AND 150MG AT NIGHT
     Route: 048
     Dates: start: 201502
  5. LYRICA [Suspect]
     Active Substance: PREGABALIN
     Indication: FIBROMYALGIA
     Dosage: UNK
     Route: 048
     Dates: start: 2011

REACTIONS (7)
  - Weight increased [Not Recovered/Not Resolved]
  - Drug effect incomplete [Unknown]
  - Somnolence [Unknown]
  - Therapeutic response unexpected [Unknown]
  - Weight loss poor [Not Recovered/Not Resolved]
  - Pre-existing condition improved [Unknown]
  - Weight decreased [Unknown]

NARRATIVE: CASE EVENT DATE: 2015
